FAERS Safety Report 7443607-X (Version None)
Quarter: 2011Q2

REPORT INFORMATION
  Report Type: 
  Country: None (occurrence: None)
  Receive Date: 20110428
  Receipt Date: 20110414
  Transmission Date: 20111010
  Serious: Yes (Other)
  Sender: FDA-Public Use
  Company Number: PHHY2011MX33407

PATIENT
  Sex: Male

DRUGS (1)
  1. ZOMETA [Suspect]
     Indication: BREAST CANCER
     Dosage: 4 MG/5MLUNK
     Dates: start: 20110412

REACTIONS (3)
  - EYE PAIN [None]
  - BURNING SENSATION [None]
  - PYREXIA [None]
